FAERS Safety Report 10343589 (Version 1)
Quarter: 2014Q3

REPORT INFORMATION
  Report Type: Spontaneous
  Country: US (occurrence: US)
  Receive Date: 20140725
  Receipt Date: 20140725
  Transmission Date: 20150326
  Serious: Yes (Hospitalization)
  Sender: FDA-Public Use
  Company Number: US-GLAXOSMITHKLINE-A1082561A

PATIENT
  Age: 45 Year
  Sex: Male

DRUGS (4)
  1. COREG [Suspect]
     Active Substance: CARVEDILOL
     Indication: PRODUCT USED FOR UNKNOWN INDICATION
     Dosage: 12.5MG UNKNOWN
  2. UNSPECIFIED MEDICATIONS [Suspect]
     Active Substance: UNSPECIFIED INGREDIENT
     Indication: ARTERIAL SPASM
  3. PAIN MEDICATION [Suspect]
     Active Substance: UNSPECIFIED INGREDIENT
  4. BLOOD THINNER [Suspect]
     Active Substance: UNSPECIFIED INGREDIENT

REACTIONS (57)
  - Autoimmune disorder [Unknown]
  - Angina pectoris [Unknown]
  - Drug ineffective [Unknown]
  - Surgery [Unknown]
  - Spinal osteoarthritis [Unknown]
  - Musculoskeletal pain [Unknown]
  - Constipation [Unknown]
  - Hypoaesthesia [Unknown]
  - Thoracic outlet syndrome [Unknown]
  - Intervertebral disc operation [Unknown]
  - Rectal haemorrhage [Unknown]
  - Transient ischaemic attack [Unknown]
  - Vision blurred [Unknown]
  - Groin pain [Unknown]
  - Arthralgia [Unknown]
  - Arteriosclerosis [Unknown]
  - Microangiopathy [Unknown]
  - Spinal fusion surgery [Unknown]
  - Colonoscopy [Unknown]
  - Musculoskeletal disorder [Unknown]
  - Insomnia [Unknown]
  - Cervical vertebral fracture [Unknown]
  - Hypersensitivity [Unknown]
  - Nervous system disorder [Unknown]
  - Arteriosclerosis coronary artery [Unknown]
  - Hypertension [Unknown]
  - Hyperlipidaemia [Unknown]
  - Cardiac operation [Unknown]
  - Headache [Not Recovered/Not Resolved]
  - Hyperhidrosis [Unknown]
  - Back pain [Unknown]
  - Cardiac disorder [Unknown]
  - Peripheral coldness [Unknown]
  - Eructation [Unknown]
  - Catheterisation cardiac [Unknown]
  - Deep vein thrombosis [Unknown]
  - Cardiac stress test [Unknown]
  - Sleep disorder [Unknown]
  - Pain [Unknown]
  - Colon cancer [Unknown]
  - Flushing [Unknown]
  - Neuropathy peripheral [Unknown]
  - Peripheral swelling [Unknown]
  - Paraesthesia [Unknown]
  - Peripheral venous disease [Unknown]
  - Gastrooesophageal reflux disease [Unknown]
  - Coronary artery occlusion [Unknown]
  - Myocardial infarction [Unknown]
  - Gastrointestinal polyp haemorrhage [Unknown]
  - Chest pain [Not Recovered/Not Resolved]
  - Pain in extremity [Not Recovered/Not Resolved]
  - Arterial spasm [Unknown]
  - Large intestine polyp [Unknown]
  - Pain in extremity [Unknown]
  - Neck pain [Unknown]
  - Abnormal sensation in eye [Unknown]
  - Gastrointestinal pain [Unknown]

NARRATIVE: CASE EVENT DATE: 200909
